FAERS Safety Report 18345295 (Version 1)
Quarter: 2020Q4

REPORT INFORMATION
  Report Type: Spontaneous
  Country: US (occurrence: US)
  Receive Date: 20201005
  Receipt Date: 20201005
  Transmission Date: 20210114
  Serious: No
  Sender: FDA-Public Use
  Company Number: US-ALLERGAN-2003828US

PATIENT
  Sex: Female

DRUGS (2)
  1. LINZESS [Suspect]
     Active Substance: LINACLOTIDE
     Indication: PRODUCT USED FOR UNKNOWN INDICATION
     Dosage: 145 ?G, UNKNOWN
  2. LINZESS [Suspect]
     Active Substance: LINACLOTIDE
     Dosage: 72 UNK

REACTIONS (3)
  - Intentional product misuse [Unknown]
  - Frequent bowel movements [Unknown]
  - Diarrhoea [Unknown]
